FAERS Safety Report 6386547-X (Version None)
Quarter: 2009Q4

REPORT INFORMATION
  Report Type: 
  Country: None (occurrence: None)
  Receive Date: 20091002
  Receipt Date: 20090410
  Transmission Date: 20100525
  Serious: No
  Sender: FDA-Public Use
  Company Number: US-ASTRAZENECA-2009UW09121

PATIENT
  Age: 56 Year
  Sex: Female

DRUGS (7)
  1. ARIMIDEX [Suspect]
     Indication: OVARIAN CANCER
     Route: 048
     Dates: start: 20090331
  2. SIMVASTATIN [Concomitant]
  3. ATENOLOL [Concomitant]
  4. NIFEDICAL [Concomitant]
  5. QUINAPRIL [Concomitant]
  6. HYDROCHLOROTHIAZIDE [Concomitant]
  7. METFORMIN [Concomitant]

REACTIONS (2)
  - DISORIENTATION [None]
  - DIZZINESS [None]
